FAERS Safety Report 6832692-1 (Version None)
Quarter: 2010Q3

REPORT INFORMATION
  Report Type: 
  Country: None (occurrence: None)
  Receive Date: 20100712
  Receipt Date: 20070522
  Transmission Date: 20110219
  Serious: No
  Sender: FDA-Public Use
  Company Number: US-PFIZER INC-2007020110

PATIENT
  Sex: Female
  Weight: 68.95 kg

DRUGS (3)
  1. CHANTIX [Suspect]
     Indication: SMOKING CESSATION THERAPY
     Route: 048
     Dates: start: 20070101
  2. MACRODANTIN [Concomitant]
  3. PREMARIN [Concomitant]

REACTIONS (2)
  - BLISTER [None]
  - NERVOUSNESS [None]
